FAERS Safety Report 7625267-8 (Version None)
Quarter: 2011Q3

REPORT INFORMATION
  Report Type: 
  Country: None (occurrence: None)
  Receive Date: 20110712
  Receipt Date: 20110627
  Transmission Date: 20111222
  Serious: Yes (Other)
  Sender: FDA-Public Use
  Company Number: TPA2011A03568

PATIENT
  Sex: Male

DRUGS (2)
  1. ACTOS [Suspect]
     Indication: BLOOD GLUCOSE ABNORMAL
     Dosage: 45 MG, 1 IN 1 D, ORAL
     Route: 048
  2. UNSPECIFIED HORMONE SHOT (HORMONES NOS) [Suspect]
     Indication: PROSTATE CANCER

REACTIONS (3)
  - DEPRESSION [None]
  - PROSTATE CANCER [None]
  - BLOOD GLUCOSE INCREASED [None]
